FAERS Safety Report 8470803-5 (Version None)
Quarter: 2012Q2

REPORT INFORMATION
  Report Type: 
  Country: None (occurrence: None)
  Receive Date: 20120323
  Receipt Date: 20111130
  Transmission Date: 20120825
  Serious: Yes (Hospitalization)
  Sender: FDA-Public Use
  Company Number: 163-21880-11101442

PATIENT
  Age: 71 Year
  Sex: Male

DRUGS (17)
  1. SENOKOT (SENNA FRUIT)(UNKNOWN) [Concomitant]
  2. VITAMIN D (ERGOCALCIFEROL)(UNKNOWN) [Concomitant]
  3. TYLENOL (PARACETAMOL)(UNKNOWN) [Concomitant]
  4. FLOMAX (TAMSULOSIN HYDROCHLORIDE)(UNKNOWN) [Concomitant]
  5. LOPRESSOR [Concomitant]
  6. MULTI-VITAMIN (MULTIVITAMINS)(UNKNOWN) [Concomitant]
  7. ZOCOR (SIMVASTATIN)(UNKNOWN) [Concomitant]
  8. CIPRO (CIPROFLOXACIN HYDROCHLORIDE)(UNKNOWN) [Concomitant]
  9. CLARITIN (LORATADINE)(UNKNOW [Concomitant]
  10. FIBER (POLYCARBOPHIL CALCIUM)(UNKNOWN) [Concomitant]
  11. REVLIMID [Suspect]
     Indication: AMYLOIDOSIS
     Dosage: 10 MG, QD, X 28 DAYS, PO, 5 MG, QD X 28 DAYS, PO, 5 MG, M, W, F, PO
     Route: 048
     Dates: start: 20111001
  12. REVLIMID [Suspect]
     Indication: AMYLOIDOSIS
     Dosage: 10 MG, QD, X 28 DAYS, PO, 5 MG, QD X 28 DAYS, PO, 5 MG, M, W, F, PO
     Route: 048
     Dates: start: 20110601, end: 20111011
  13. REVLIMID [Suspect]
     Indication: AMYLOIDOSIS
     Dosage: 10 MG, QD, X 28 DAYS, PO, 5 MG, QD X 28 DAYS, PO, 5 MG, M, W, F, PO
     Route: 048
     Dates: start: 20090722, end: 20110101
  14. ADVAIR DISKUS (SERETIDE MITE)(UNKNOWN [Concomitant]
  15. COUMADIN (WARFARIN SODIUM)(7 MILLIGRAM, TABLETS) [Concomitant]
  16. CLOFEN (BACLOFEN)(TABLETS) [Concomitant]
  17. PROBIOTIC COMPLEX (BIFIDOBACTERIUM LACTIS)(UNKNOWN) [Concomitant]

REACTIONS (1)
  - DYSPNOEA [None]
